FAERS Safety Report 21104704 (Version 8)
Quarter: 2022Q4

REPORT INFORMATION
  Report Type: Spontaneous
  Country: US (occurrence: US)
  Receive Date: 20220720
  Receipt Date: 20221114
  Transmission Date: 20230113
  Serious: Yes (Hospitalization, Other)
  Sender: FDA-Public Use
  Company Number: US-PFIZER INC-202200975272

PATIENT
  Age: 56 Year
  Sex: Female
  Weight: 90.703 kg

DRUGS (6)
  1. PAXLOVID [Suspect]
     Active Substance: NIRMATRELVIR\RITONAVIR
     Indication: COVID-19 treatment
     Dosage: [PF-07321332 300 MG]/[RITONAVIR 100 MG]; 2X/DAY
     Dates: start: 202206, end: 2022
  2. MUCINEX [Suspect]
     Active Substance: GUAIFENESIN
     Dosage: UNK, 2X/DAY
     Dates: start: 202206, end: 202206
  3. IBUPROFEN [Concomitant]
     Active Substance: IBUPROFEN
     Indication: Emotional distress
     Dosage: OCCASIONALLY
     Dates: start: 202206
  4. LEVOTHYROXINE [Concomitant]
     Active Substance: LEVOTHYROXINE
     Indication: Insomnia
     Dosage: 75 UG, 1X/DAY
  5. TRAZODONE HYDROCHLORIDE [Concomitant]
     Active Substance: TRAZODONE HYDROCHLORIDE
     Dosage: 300 MG, 1X/DAY
  6. ZYPREXA [Concomitant]
     Active Substance: OLANZAPINE
     Indication: Injury
     Dosage: UNK, 1X/DAY

REACTIONS (11)
  - Increased viscosity of bronchial secretion [Recovered/Resolved]
  - Dry mouth [Not Recovered/Not Resolved]
  - Product administration error [Unknown]
  - Product storage error [Unknown]
  - Product dose omission issue [Unknown]
  - Therapeutic response unexpected [Recovered/Resolved]
  - COVID-19 [Recovered/Resolved]
  - Disease recurrence [Recovered/Resolved]
  - Respiratory tract irritation [Recovered/Resolved]
  - Feeling abnormal [Recovered/Resolved]
  - Asthenia [Recovered/Resolved]

NARRATIVE: CASE EVENT DATE: 20220101
